FAERS Safety Report 8606693-7 (Version None)
Quarter: 2012Q3

REPORT INFORMATION
  Report Type: 
  Country: None (occurrence: None)
  Receive Date: 20120820
  Receipt Date: 20120815
  Transmission Date: 20120928
  Serious: Yes (Hospitalization)
  Sender: FDA-Public Use
  Company Number: JP-ROCHE-1059723

PATIENT
  Sex: Male
  Weight: 57 kg

DRUGS (11)
  1. MIRCERA [Suspect]
     Route: 058
     Dates: start: 20111129, end: 20111129
  2. CRESTOR [Concomitant]
     Route: 048
     Dates: start: 20110912
  3. MIRCERA [Suspect]
     Route: 058
     Dates: start: 20120403, end: 20120403
  4. ADALAT CC [Concomitant]
     Route: 048
     Dates: start: 20110912
  5. FERROUS CITRATE [Concomitant]
     Route: 048
     Dates: start: 20110912
  6. MIRCERA [Suspect]
     Indication: NEPHROGENIC ANAEMIA
     Route: 058
     Dates: start: 20111101, end: 20111101
  7. MIRCERA [Suspect]
     Route: 058
     Dates: start: 20120110, end: 20120110
  8. MIRCERA [Suspect]
     Route: 058
     Dates: start: 20120207, end: 20120101
  9. BASEN [Concomitant]
     Route: 048
     Dates: start: 20110912
  10. PRECIPITATED CALCIUM CARBONATE [Concomitant]
     Route: 048
     Dates: start: 20110912
  11. MICARDIS [Concomitant]
     Route: 048
     Dates: start: 20110912

REACTIONS (1)
  - APLASIA PURE RED CELL [None]
